FAERS Safety Report 21778270 (Version 6)
Quarter: 2023Q4

REPORT INFORMATION
  Report Type: Report from Study
  Country: TR (occurrence: TR)
  Receive Date: 20221226
  Receipt Date: 20231004
  Transmission Date: 20240110
  Serious: Yes (Hospitalization, Other)
  Sender: FDA-Public Use
  Company Number: TR-BIOVITRUM-2022TR15253

PATIENT
  Age: 8 Year
  Sex: Female
  Weight: 40.8 kg

DRUGS (8)
  1. AVATROMBOPAG [Suspect]
     Active Substance: AVATROMBOPAG
     Indication: Immune thrombocytopenia
     Dates: start: 20221121, end: 20221218
  2. AVATROMBOPAG [Suspect]
     Active Substance: AVATROMBOPAG
     Dates: start: 20230102
  3. AVATROMBOPAG [Suspect]
     Active Substance: AVATROMBOPAG
     Dates: start: 20230213
  4. CEFDINIR [Concomitant]
     Active Substance: CEFDINIR
     Indication: Upper respiratory tract infection
     Dosage: 2 X 1 (TWO TIMES DAILY)
     Route: 048
     Dates: start: 20221218, end: 20221223
  5. CEFDINIR [Concomitant]
     Active Substance: CEFDINIR
     Indication: Headache
  6. CEFDINIR [Concomitant]
     Active Substance: CEFDINIR
     Indication: Cough
  7. PAROL [Concomitant]
     Active Substance: ACETAMINOPHEN
     Indication: Thrombocytosis
     Dosage: 3 X 1 (3 TIMES DAILY)
     Route: 048
     Dates: start: 20221218, end: 20221223
  8. PAROL [Concomitant]
     Active Substance: ACETAMINOPHEN
     Indication: Headache

REACTIONS (2)
  - Thrombocytosis [Recovered/Resolved]
  - Headache [Recovered/Resolved]

NARRATIVE: CASE EVENT DATE: 20221219
